FAERS Safety Report 26195592 (Version 1)
Quarter: 2025Q4

REPORT INFORMATION
  Report Type: Spontaneous
  Country: US (occurrence: US)
  Receive Date: 20251224
  Receipt Date: 20251224
  Transmission Date: 20260117
  Serious: No
  Sender: ROCHE
  Company Number: US-ROCHE-10000460610

PATIENT

DRUGS (2)
  1. LUCENTIS [Suspect]
     Active Substance: RANIBIZUMAB
     Indication: Product used for unknown indication
  2. LUCENTIS [Suspect]
     Active Substance: RANIBIZUMAB

REACTIONS (2)
  - Intercepted product storage error [Unknown]
  - No adverse event [Unknown]
